FAERS Safety Report 11516445 (Version 2)
Quarter: 2015Q3

REPORT INFORMATION
  Report Type: Spontaneous
  Country: US (occurrence: US)
  Receive Date: 20150917
  Receipt Date: 20150922
  Transmission Date: 20151125
  Serious: No
  Sender: FDA-Public Use
  Company Number: US-PFIZER INC-2015307497

PATIENT
  Age: 35 Year
  Sex: Female

DRUGS (3)
  1. IBUPROFEN. [Concomitant]
     Active Substance: IBUPROFEN
     Dosage: UNK
  2. XELJANZ [Suspect]
     Active Substance: TOFACITINIB CITRATE
     Indication: RHEUMATOID ARTHRITIS
     Dosage: 5 MG, 2X/DAY
     Route: 048
  3. FOLIC ACID. [Concomitant]
     Active Substance: FOLIC ACID
     Dosage: UNK

REACTIONS (6)
  - Dizziness [Unknown]
  - Acne [Unknown]
  - Headache [Unknown]
  - Generalised erythema [Unknown]
  - Alopecia [Unknown]
  - Rash pruritic [Unknown]

NARRATIVE: CASE EVENT DATE: 20150909
